FAERS Safety Report 20759085 (Version 1)
Quarter: 2022Q2

REPORT INFORMATION
  Report Type: Spontaneous
  Country: US (occurrence: US)
  Receive Date: 20220427
  Receipt Date: 20220427
  Transmission Date: 20220721
  Serious: No
  Sender: FDA-Public Use
  Company Number: US-BioHaven Pharmaceuticals-2021BHV003174

PATIENT
  Age: 18 Year
  Sex: Female
  Weight: 90.800 kg

DRUGS (2)
  1. NURTEC ODT [Suspect]
     Active Substance: RIMEGEPANT SULFATE
     Indication: Migraine
     Dosage: HAD NURTEC FOR A MONTH, HAS TAKEN IT FOR THE 6TH TIME.
     Route: 048
     Dates: start: 2021
  2. AMITRIPTYLINE [Concomitant]
     Active Substance: AMITRIPTYLINE
     Indication: Migraine
     Dosage: PRESCRIPTION THAT HELPS WITH MIGRAINES AMITRIPTYLINE NIGHTLY
     Route: 065

REACTIONS (1)
  - Drug ineffective [Not Recovered/Not Resolved]
